FAERS Safety Report 4893621-3 (Version None)
Quarter: 2005Q4

REPORT INFORMATION
  Report Type: 
  Country: None (occurrence: None)
  Receive Date: 20051223
  Receipt Date: 20051011
  Transmission Date: 20060501
  Serious: No
  Sender: FDA-Public Use
  Company Number: 2005PV003087

PATIENT
  Age: 67 Year
  Sex: Female
  Weight: 72.5755 kg

DRUGS (5)
  1. SYMLIN [Suspect]
     Indication: DIABETES MELLITUS INSULIN-DEPENDENT
     Dosage: 60 MCG;BID;SC ; 46 MCG;SC ; 30 MCG;SC ; 15 MCG;SC
     Route: 058
     Dates: start: 20050101, end: 20050101
  2. SYMLIN [Suspect]
     Indication: DIABETES MELLITUS INSULIN-DEPENDENT
     Dosage: 60 MCG;BID;SC ; 46 MCG;SC ; 30 MCG;SC ; 15 MCG;SC
     Route: 058
     Dates: start: 20050101, end: 20050101
  3. SYMLIN [Suspect]
     Indication: DIABETES MELLITUS INSULIN-DEPENDENT
     Dosage: 60 MCG;BID;SC ; 46 MCG;SC ; 30 MCG;SC ; 15 MCG;SC
     Route: 058
     Dates: start: 20050101, end: 20050101
  4. SYMLIN [Suspect]
     Indication: DIABETES MELLITUS INSULIN-DEPENDENT
     Dosage: 60 MCG;BID;SC ; 46 MCG;SC ; 30 MCG;SC ; 15 MCG;SC
     Route: 058
     Dates: start: 20051001
  5. HUMALOG INSULIN PUMP [Concomitant]

REACTIONS (5)
  - BLOOD GLUCOSE FLUCTUATION [None]
  - DRY MOUTH [None]
  - EARLY SATIETY [None]
  - GASTROOESOPHAGEAL REFLUX DISEASE [None]
  - NAUSEA [None]
